FAERS Safety Report 11838694 (Version 1)
Quarter: 2015Q4

REPORT INFORMATION
  Report Type: Spontaneous
  Country: US (occurrence: US)
  Receive Date: 20151215
  Receipt Date: 20151215
  Transmission Date: 20160305
  Serious: Yes (Other)
  Sender: FDA-Public Use
  Company Number: US-SA-2015SA148870

PATIENT
  Age: 64 Year
  Sex: Female

DRUGS (12)
  1. IBRANCE [Concomitant]
     Active Substance: PALBOCICLIB
     Dosage: 125 MG, 28 DAY SUPPLY?FOR 21 DAYS/7 DAYS OFF
     Route: 048
  2. FASLODEX [Concomitant]
     Active Substance: FULVESTRANT
     Dates: start: 2012, end: 2012
  3. XELODA [Concomitant]
     Active Substance: CAPECITABINE
     Dates: start: 2012
  4. AFINITOR [Concomitant]
     Active Substance: EVEROLIMUS
     Dates: start: 2015
  5. FEMARA [Concomitant]
     Active Substance: LETROZOLE
  6. AROMASIN [Concomitant]
     Active Substance: EXEMESTANE
     Dates: start: 201505
  7. TAMOXIFEN [Concomitant]
     Active Substance: TAMOXIFEN
     Dates: start: 201308
  8. ABRAXANE [Concomitant]
     Active Substance: PACLITAXEL
  9. TAXOTERE [Suspect]
     Active Substance: DOCETAXEL
     Route: 065
     Dates: start: 201302, end: 201308
  10. IBRANCE [Concomitant]
     Active Substance: PALBOCICLIB
     Route: 048
  11. FASLODEX [Concomitant]
     Active Substance: FULVESTRANT
     Dates: start: 201201, end: 201201
  12. ARIMIDEX [Concomitant]
     Active Substance: ANASTROZOLE

REACTIONS (1)
  - Disease progression [Unknown]
